FAERS Safety Report 10171874 (Version 1)
Quarter: 2014Q2

REPORT INFORMATION
  Report Type: Spontaneous
  Country: IT (occurrence: None)
  Receive Date: 20140512
  Receipt Date: 20140512
  Transmission Date: 20141212
  Serious: Yes (Other)
  Sender: FDA-Public Use
  Company Number: KAD201405-000466

PATIENT
  Sex: Female

DRUGS (2)
  1. RIBAVIRIN [Suspect]
     Indication: PAPILLOMA VIRAL INFECTION
     Route: 048
     Dates: start: 201206
  2. INTERFERON ALFA-2B [Suspect]
     Indication: PAPILLOMA VIRAL INFECTION
     Dosage: 10 MILLION IU ONCE PER WEEK
     Dates: start: 201206

REACTIONS (4)
  - Influenza like illness [None]
  - Fistula [None]
  - Off label use [None]
  - Therapeutic response changed [None]
